FAERS Safety Report 25023287 (Version 2)
Quarter: 2025Q2

REPORT INFORMATION
  Report Type: Spontaneous
  Country: US (occurrence: US)
  Receive Date: 20250228
  Receipt Date: 20250402
  Transmission Date: 20250717
  Serious: No
  Sender: TOLMAR
  Company Number: US-TOLMAR, INC.-25US056503

PATIENT
  Sex: Male

DRUGS (2)
  1. ELIGARD [Suspect]
     Active Substance: LEUPROLIDE ACETATE
     Indication: Prostate cancer
     Dates: start: 20250122
  2. ELIGARD [Suspect]
     Active Substance: LEUPROLIDE ACETATE

REACTIONS (5)
  - Intercepted product preparation error [Unknown]
  - Product packaging quantity issue [Unknown]
  - Liquid product physical issue [Unknown]
  - Device occlusion [Unknown]
  - Syringe issue [Unknown]

NARRATIVE: CASE EVENT DATE: 20250122
